FAERS Safety Report 7951754-9 (Version None)
Quarter: 2011Q4

REPORT INFORMATION
  Report Type: 
  Country: None (occurrence: None)
  Receive Date: 20111201
  Receipt Date: 20111129
  Transmission Date: 20120403
  Serious: Yes (Other)
  Sender: FDA-Public Use
  Company Number: US-JNJFOC-20110609721

PATIENT
  Sex: Male

DRUGS (4)
  1. LEVAQUIN [Suspect]
     Indication: BENIGN PROSTATIC HYPERPLASIA
     Route: 042
  2. LEVAQUIN [Suspect]
     Indication: SURGERY
     Route: 042
  3. LEVAQUIN [Suspect]
     Indication: URINARY TRACT DISORDER
     Route: 048
     Dates: start: 20081001, end: 20090630
  4. LEVAQUIN [Suspect]
     Indication: INFECTION PROPHYLAXIS
     Route: 048
     Dates: start: 20081001, end: 20090630

REACTIONS (4)
  - TENDON RUPTURE [None]
  - ROTATOR CUFF SYNDROME [None]
  - PAIN [None]
  - TENDONITIS [None]
